FAERS Safety Report 4949019-2 (Version None)
Quarter: 2006Q2

REPORT INFORMATION
  Report Type: 
  Country: None (occurrence: None)
  Receive Date: 20060316
  Receipt Date: 20060306
  Transmission Date: 20061013
  Serious: Yes (Disabling, Other)
  Sender: FDA-Public Use
  Company Number: 2006033678

PATIENT
  Age: 61 Year
  Sex: Female
  Weight: 91.6266 kg

DRUGS (11)
  1. PROCARDIA XL [Suspect]
     Indication: HYPERTENSION
     Dosage: (60 MG,)
     Dates: start: 19591009
  2. IBUPROFEN [Suspect]
     Indication: PAIN
     Dosage: (800 MG)
  3. METFORMIN [Concomitant]
  4. DIPHENHYDRAMINE HCL [Concomitant]
  5. LEVOTHYROXINE SODIUM [Concomitant]
  6. HYDROCHLOROTHIAZIDE [Concomitant]
  7. ESTRADIOL INJ [Concomitant]
  8. PAROXETINE HCL [Concomitant]
  9. RANITIDINE [Concomitant]
  10. DULCOLAX [Concomitant]
  11. OSCAL (CALCIUM CARBONATE) [Concomitant]

REACTIONS (36)
  - ABDOMINAL PAIN UPPER [None]
  - ADHESION [None]
  - BACK INJURY [None]
  - BLINDNESS TRANSIENT [None]
  - BLOOD GLUCOSE INCREASED [None]
  - BLOOD PRESSURE INCREASED [None]
  - BODY HEIGHT DECREASED [None]
  - CARDIAC MURMUR [None]
  - DEPRESSION [None]
  - DRUG DOSE OMISSION [None]
  - DRUG INEFFECTIVE [None]
  - FALL [None]
  - GASTROINTESTINAL DISORDER [None]
  - GASTROINTESTINAL STOMA COMPLICATION [None]
  - HAEMORRHAGE [None]
  - HEADACHE [None]
  - HEMIPLEGIA [None]
  - HYPOTHYROIDISM [None]
  - IATROGENIC INJURY [None]
  - INSOMNIA [None]
  - LOWER LIMB FRACTURE [None]
  - MOUTH HAEMORRHAGE [None]
  - MUSCLE SPASMS [None]
  - OBSTRUCTIVE AIRWAYS DISORDER [None]
  - OEDEMA PERIPHERAL [None]
  - PALATAL DISORDER [None]
  - PHARYNGITIS STREPTOCOCCAL [None]
  - POLYARTHRITIS [None]
  - POLYTRAUMATISM [None]
  - RECTAL HAEMORRHAGE [None]
  - RETAINED PLACENTA OR MEMBRANES [None]
  - RHEUMATIC FEVER [None]
  - THYROID NEOPLASM [None]
  - VISION BLURRED [None]
  - VULVOVAGINAL DRYNESS [None]
  - WEIGHT FLUCTUATION [None]
